FAERS Safety Report 9131725 (Version 1)
Quarter: 2013Q1

REPORT INFORMATION
  Report Type: Spontaneous
  Country: US (occurrence: US)
  Receive Date: 20130301
  Receipt Date: 20130301
  Transmission Date: 20140127
  Serious: No
  Sender: FDA-Public Use
  Company Number: US-009507513-1302USA007902

PATIENT
  Age: 60 Year
  Sex: Female
  Weight: 67.57 kg

DRUGS (7)
  1. PEGINTRON [Suspect]
     Dosage: 1.5 MICROGRAM PER KILOGRAM, QW
     Route: 058
  2. RIBAVIRIN [Suspect]
     Route: 048
  3. CLONIDINE [Concomitant]
     Dosage: 0.2 MG
     Route: 048
  4. NORVASC [Concomitant]
     Dosage: 10 MG
     Route: 048
  5. ZESTRIL [Concomitant]
     Dosage: 5 MG
     Route: 048
  6. XANAX [Concomitant]
     Route: 048
  7. VICODIN [Concomitant]
     Dosage: 500 MG
     Route: 048

REACTIONS (3)
  - Injection site bruising [Unknown]
  - Injection site erythema [Unknown]
  - Injection site pain [Unknown]
